FAERS Safety Report 8507947-5 (Version None)
Quarter: 2012Q3

REPORT INFORMATION
  Report Type: 
  Country: None (occurrence: None)
  Receive Date: 20120713
  Receipt Date: 20120705
  Transmission Date: 20120928
  Serious: Yes (Hospitalization)
  Sender: FDA-Public Use
  Company Number: US-BAYER-201020821NA

PATIENT
  Age: 24 Year
  Sex: Female
  Weight: 79.819 kg

DRUGS (7)
  1. SUCRALFATE [Concomitant]
     Dosage: 1 G, UNK
     Route: 048
  2. OMEPRAZOLE [Concomitant]
     Dosage: 40 MG, UNK
     Route: 048
  3. YAZ [Suspect]
     Dosage: FORGOT TO TAKE 1 PILL
     Route: 048
     Dates: start: 20061201, end: 20110101
  4. ALPRAZOLAM [Concomitant]
     Dosage: 0.25 MG, UNK
     Route: 048
  5. TYLENOL W/ CODEINE NO. 3 [Concomitant]
  6. YASMIN [Suspect]
     Dosage: UNK
     Dates: start: 20061201, end: 20110101
  7. YAZ [Suspect]

REACTIONS (8)
  - FLATULENCE [None]
  - PREGNANCY ON ORAL CONTRACEPTIVE [None]
  - GALLBLADDER DISORDER [None]
  - CHOLECYSTITIS CHRONIC [None]
  - INJURY [None]
  - ALOPECIA [None]
  - PAIN [None]
  - ABDOMINAL PAIN UPPER [None]
